APPROVED DRUG PRODUCT: AEROLONE
Active Ingredient: ISOPROTERENOL HYDROCHLORIDE
Strength: 0.25%
Dosage Form/Route: SOLUTION;INHALATION
Application: N007245 | Product #001
Applicant: ELI LILLY AND CO
Approved: Approved Prior to Jan 1, 1982 | RLD: No | RS: No | Type: DISCN